FAERS Safety Report 9127118 (Version 2)
Quarter: 2013Q1

REPORT INFORMATION
  Report Type: Spontaneous
  Country: US (occurrence: US)
  Receive Date: 20130228
  Receipt Date: 20130304
  Transmission Date: 20140127
  Serious: No
  Sender: FDA-Public Use
  Company Number: US-009507513-1302USA010770

PATIENT
  Sex: Male

DRUGS (1)
  1. PEGINTRON [Suspect]
     Dosage: UNK UNK, QW
     Route: 058

REACTIONS (3)
  - Product quality issue [Unknown]
  - Device misuse [Unknown]
  - Device issue [Unknown]
